FAERS Safety Report 4774020-1 (Version None)
Quarter: 2005Q3

REPORT INFORMATION
  Report Type: 
  Country: None (occurrence: None)
  Receive Date: 20050920
  Receipt Date: 20050830
  Transmission Date: 20060218
  Serious: Yes (Life-Threatening, Hospitalization)
  Sender: FDA-Public Use
  Company Number: FR-BRISTOL-MYERS SQUIBB COMPANY-13104997

PATIENT
  Age: 80 Year
  Sex: Male

DRUGS (5)
  1. ERBITUX [Suspect]
     Indication: COLORECTAL CANCER
     Dosage: 400 MG/M2 (LOADING DOSE).
     Route: 042
     Dates: start: 20050830, end: 20050830
  2. ASPEGIC 325 [Concomitant]
     Indication: DRUG USE FOR UNKNOWN INDICATION
     Route: 048
     Dates: start: 20050601
  3. LOXEN [Concomitant]
     Indication: HYPERTENSION
     Route: 048
     Dates: start: 20040601
  4. SOLU-MEDROL [Concomitant]
     Indication: PREMEDICATION
  5. POLARAMINE [Concomitant]
     Indication: PREMEDICATION

REACTIONS (1)
  - CARDIAC ARREST [None]
